FAERS Safety Report 8514464-5 (Version None)
Quarter: 2012Q3

REPORT INFORMATION
  Report Type: 
  Country: None (occurrence: None)
  Receive Date: 20120717
  Receipt Date: 20120709
  Transmission Date: 20120928
  Serious: Yes (Hospitalization)
  Sender: FDA-Public Use
  Company Number: FR-PFIZER INC-2012163422

PATIENT
  Age: 74 Year
  Sex: Male
  Weight: 71 kg

DRUGS (10)
  1. CLONAZEPAM [Concomitant]
     Dosage: 5 DROPS ONCE DAILY IN THE EVENING
     Route: 048
  2. LYRICA [Concomitant]
     Dosage: 150 MG, 2X/DAY
     Route: 048
  3. HALDOL [Concomitant]
     Dosage: 1 DF, 4X/DAY (EVERY SIX HOURS)
     Route: 048
  4. DURAGESIC-100 [Concomitant]
     Dosage: 150 UG, EVERY 3 DAYS, 1 PATCH EVERY 3 DAYS
     Route: 062
  5. PREDNISOLONE [Concomitant]
     Dosage: 1 DF, 1X/DAY, EVERY MORNING
  6. BACTRIM DS [Concomitant]
     Dosage: 1 DF, IN THE MORNING ON MONDAY, WEDNESDAY AND FRIDAY
     Route: 048
  7. DOXORUBICIN HCL [Suspect]
     Indication: MESOTHELIOMA MALIGNANT
     Dosage: 96 MG, EVERY 3 WEEKS
     Route: 042
     Dates: start: 20101215, end: 20110105
  8. KETOPROFEN [Concomitant]
     Dosage: 100 MG, 2X/DAY
     Route: 048
  9. PRIMPERAN TAB [Concomitant]
     Dosage: 1 DF, 1X/DAY, IN THE EVENING
     Route: 048
  10. NEXIUM [Concomitant]
     Dosage: 1 DF, 1X/DAY IN THE EVENING
     Route: 048

REACTIONS (4)
  - DISEASE PROGRESSION [None]
  - ENTEROBACTER BACTERAEMIA [None]
  - FEBRILE NEUTROPENIA [None]
  - MESOTHELIOMA MALIGNANT [None]
